FAERS Safety Report 4421491-6 (Version None)
Quarter: 2004Q3

REPORT INFORMATION
  Report Type: 
  Country: None (occurrence: None)
  Receive Date: 20040709
  Receipt Date: 20030919
  Transmission Date: 20050211
  Serious: Yes (Other)
  Sender: FDA-Public Use
  Company Number: US-SHR-03-014810

PATIENT

DRUGS (2)
  1. ULTRAVIST 300 [Suspect]
     Dosage: 1 DOSE, INTRAVENOUS
     Route: 042
  2. BENADRYL [Concomitant]

REACTIONS (2)
  - EYE SWELLING [None]
  - THROAT TIGHTNESS [None]
